FAERS Safety Report 13544247 (Version 1)
Quarter: 2017Q2

REPORT INFORMATION
  Report Type: Report from Study
  Country: CO (occurrence: CO)
  Receive Date: 20170515
  Receipt Date: 20170515
  Transmission Date: 20170830
  Serious: Yes (Other)
  Sender: FDA-Public Use
  Company Number: CO-AMGEN-COLSL2017071675

PATIENT
  Age: 58 Year
  Sex: Female

DRUGS (1)
  1. VECTIBIX [Suspect]
     Active Substance: PANITUMUMAB
     Indication: COLORECTAL CANCER METASTATIC
     Dosage: 300 MG, Q2WK (BIWEEKLY)
     Route: 042
     Dates: start: 20160506, end: 20170323

REACTIONS (3)
  - Disease progression [Not Recovered/Not Resolved]
  - Carcinoembryonic antigen increased [Unknown]
  - Treatment failure [Unknown]
